FAERS Safety Report 5861233-0 (Version None)
Quarter: 2008Q3

REPORT INFORMATION
  Report Type: 
  Country: None (occurrence: None)
  Receive Date: 20080827
  Receipt Date: 20080313
  Transmission Date: 20090109
  Serious: No
  Sender: FDA-Public Use
  Company Number: US-ABBOTT-08P-163-0442341-00

PATIENT
  Sex: Female
  Weight: 72.64 kg

DRUGS (4)
  1. COATED PDS [Suspect]
     Indication: BLOOD TRIGLYCERIDES INCREASED
     Route: 048
     Dates: start: 20071201
  2. TOPROL-XL [Concomitant]
     Indication: DRUG USE FOR UNKNOWN INDICATION
  3. DEFLAZACORT [Concomitant]
     Indication: DIABETES MELLITUS
  4. LANTUS [Concomitant]
     Indication: DIABETES MELLITUS

REACTIONS (1)
  - COUGH [None]
